FAERS Safety Report 26118601 (Version 2)
Quarter: 2025Q4

REPORT INFORMATION
  Report Type: Report from Study
  Country: CN (occurrence: CN)
  Receive Date: 20251203
  Receipt Date: 20251209
  Transmission Date: 20260118
  Serious: Yes (Other)
  Sender: JOHNSON AND JOHNSON
  Company Number: CN-JNJFOC-20251173359

PATIENT

DRUGS (2)
  1. DARATUMUMAB [Suspect]
     Active Substance: DARATUMUMAB
     Indication: Immune thrombocytopenia
     Dosage: FOR 2-8 CYCLES
  2. METHYLPREDNISOLONE [Concomitant]
     Active Substance: METHYLPREDNISOLONE
     Indication: Prophylaxis
     Dosage: 1-2 MG/KG IV, PRIOR TO EACH INFUSION

REACTIONS (5)
  - Hypogammaglobulinaemia [Unknown]
  - Infusion related reaction [Unknown]
  - Therapeutic response unexpected [Unknown]
  - Off label use [Unknown]
  - Off label use [Unknown]
